FAERS Safety Report 4871207-4 (Version None)
Quarter: 2005Q4

REPORT INFORMATION
  Report Type: 
  Country: None (occurrence: None)
  Receive Date: 20051229
  Receipt Date: 20051213
  Transmission Date: 20060501
  Serious: No
  Sender: FDA-Public Use
  Company Number: US200512002290

PATIENT
  Age: 28 Year
  Sex: Female

DRUGS (1)
  1. CYMBALTA [Suspect]
     Indication: PAIN
     Dosage: SEE IMAGE

REACTIONS (1)
  - LIVER FUNCTION TEST ABNORMAL [None]
